FAERS Safety Report 19645895 (Version 1)
Quarter: 2021Q3

REPORT INFORMATION
  Report Type: Report from Study
  Country: US (occurrence: US)
  Receive Date: 20210802
  Receipt Date: 20210802
  Transmission Date: 20211014
  Serious: No
  Sender: FDA-Public Use
  Company Number: NVSC2021US168835

PATIENT
  Sex: Female
  Weight: 50.79 kg

DRUGS (1)
  1. TREPROSTINIL. [Suspect]
     Active Substance: TREPROSTINIL
     Indication: PULMONARY ARTERIAL HYPERTENSION
     Dosage: UNK (8 NG/KG/MIN)
     Route: 065
     Dates: start: 20210708

REACTIONS (3)
  - Dyspnoea [Unknown]
  - Depression [Unknown]
  - Anxiety [Unknown]
